FAERS Safety Report 9398861 (Version 2)
Quarter: 2013Q4

REPORT INFORMATION
  Report Type: Report from Study
  Country: JP (occurrence: JP)
  Receive Date: 20130712
  Receipt Date: 20131108
  Transmission Date: 20140711
  Serious: Yes (Disabling, Other)
  Sender: FDA-Public Use
  Company Number: JP-009507513-2011SP046778

PATIENT
  Age: 74 Year
  Sex: Female
  Weight: 44 kg

DRUGS (19)
  1. RIBAVIRIN [Suspect]
     Indication: CHRONIC HEPATITIS C
     Dosage: 600 MG 1 DAY, 200 MG AM 200 MG PM
     Route: 048
     Dates: start: 20100906, end: 20101017
  2. RIBAVIRIN [Suspect]
     Dosage: 400 MG, QD
     Route: 048
     Dates: start: 20101018, end: 20110328
  3. FERON [Suspect]
     Indication: CHRONIC HEPATITIS C
     Dosage: 6 MILLION IU, QD
     Route: 041
     Dates: start: 20100906, end: 20100908
  4. FERON [Suspect]
     Dosage: 3 MILLION IU, QD
     Route: 041
     Dates: start: 20100913, end: 20100929
  5. FERON [Suspect]
     Dosage: 3 MILLION IU, TIW
     Route: 041
     Dates: start: 20101001, end: 20110328
  6. PROHEPARUM [Concomitant]
     Indication: CHRONIC HEPATITIS C
     Dosage: TOTAL DAILY DOSE 3 DF 1 DAY
     Route: 048
  7. PARIET [Concomitant]
     Indication: GASTROOESOPHAGEAL REFLUX DISEASE
     Dosage: 10 MG, QD
     Route: 048
  8. AMOBAN [Concomitant]
     Indication: INSOMNIA
     Dosage: 7.5 MG, QD
     Route: 048
  9. SILECE [Concomitant]
     Indication: INSOMNIA
     Dosage: 2 MG, QD
     Route: 048
  10. DEPAS [Concomitant]
     Indication: INSOMNIA
     Dosage: 1 MG 1 DAY
     Route: 048
  11. DEPAS [Concomitant]
     Indication: ANXIETY
  12. SINGULAIR TABLETS 10MG [Concomitant]
     Indication: ASTHMA
     Dosage: 10 MG, QD
     Route: 048
  13. URSO [Concomitant]
     Indication: CHRONIC HEPATITIS C
     Dosage: 300 MG, QD
     Route: 048
     Dates: end: 20100927
  14. LOXONIN [Concomitant]
     Indication: PYREXIA
     Dosage: 1 DF 1 DAY
     Route: 048
     Dates: start: 20100906, end: 20110228
  15. LIVACT [Concomitant]
     Indication: HYPOALBUMINAEMIA
     Dosage: 4.15 G, TID
     Route: 048
     Dates: start: 20090407
  16. PREDONINE [Concomitant]
     Indication: ASTHMA
     Dosage: 15 MG, QD
     Route: 048
     Dates: end: 20100819
  17. LULLAN [Concomitant]
     Indication: INSOMNIA
     Dosage: 4 MG, QD
     Route: 048
     Dates: start: 20100930, end: 20101110
  18. ALBUMIN TANNATE [Concomitant]
     Indication: DIARRHOEA
     Dosage: 2 G, QD
     Route: 048
     Dates: start: 20100927, end: 20110727
  19. LAC-B [Concomitant]
     Indication: DIARRHOEA
     Dosage: 0.6 G, QD
     Route: 048
     Dates: start: 20100927, end: 20110727

REACTIONS (9)
  - Neutrophil count decreased [Recovering/Resolving]
  - Depression [Recovering/Resolving]
  - Pyrexia [Recovered/Resolved]
  - Insomnia [Not Recovered/Not Resolved]
  - Anxiety [Not Recovered/Not Resolved]
  - Decreased appetite [Not Recovered/Not Resolved]
  - Anaemia [Recovered/Resolved]
  - Diarrhoea [Not Recovered/Not Resolved]
  - Malaise [Not Recovered/Not Resolved]
